FAERS Safety Report 19219502 (Version 1)
Quarter: 2021Q2

REPORT INFORMATION
  Report Type: Spontaneous
  Country: US (occurrence: US)
  Receive Date: 20210506
  Receipt Date: 20210506
  Transmission Date: 20210717
  Serious: No
  Sender: FDA-Public Use
  Company Number: US-APOTEX-2021AP009843

PATIENT
  Age: 24 Year
  Sex: Female

DRUGS (3)
  1. DIPHENHYDRAMINE. [Suspect]
     Active Substance: DIPHENHYDRAMINE
     Indication: URTICARIA PIGMENTOSA
     Dosage: UNK
     Route: 065
  2. LORATADINE. [Suspect]
     Active Substance: LORATADINE
     Indication: URTICARIA PIGMENTOSA
     Dosage: UNK
     Route: 065
  3. IMATINIB. [Suspect]
     Active Substance: IMATINIB MESYLATE
     Indication: URTICARIA PIGMENTOSA
     Dosage: 400 MILLIGRAM, QD
     Route: 065
     Dates: start: 201403

REACTIONS (5)
  - Product use in unapproved indication [Unknown]
  - Therapy non-responder [Unknown]
  - Migraine [Unknown]
  - Adverse food reaction [Unknown]
  - Drug intolerance [Unknown]
